FAERS Safety Report 11010703 (Version 4)
Quarter: 2015Q2

REPORT INFORMATION
  Report Type: Spontaneous
  Country: JP (occurrence: JP)
  Receive Date: 20150410
  Receipt Date: 20150629
  Transmission Date: 20150821
  Serious: Yes (Hospitalization, Other)
  Sender: FDA-Public Use
  Company Number: JP-PFIZER INC-2015116060

PATIENT
  Age: 46 Year
  Sex: Female
  Weight: 48.5 kg

DRUGS (2)
  1. DICLOFENAC [Suspect]
     Active Substance: DICLOFENAC
     Dosage: 450 MG, SINGLE
     Route: 048
     Dates: start: 20150331, end: 20150331
  2. LYRICA [Suspect]
     Active Substance: PREGABALIN
     Dosage: 3525 MG, SINGLE
     Route: 048
     Dates: start: 20150331, end: 20150331

REACTIONS (6)
  - Altered state of consciousness [Recovered/Resolved]
  - Intentional overdose [Recovered/Resolved]
  - Suicide attempt [Recovered/Resolved]
  - Seizure [Recovered/Resolved]
  - Toxicity to various agents [Recovered/Resolved]
  - Pyrexia [Recovered/Resolved]

NARRATIVE: CASE EVENT DATE: 20150331
